FAERS Safety Report 14453160 (Version 2)
Quarter: 2018Q1

REPORT INFORMATION
  Report Type: Spontaneous
  Country: JP (occurrence: JP)
  Receive Date: 20180129
  Receipt Date: 20180212
  Transmission Date: 20180509
  Serious: Yes (Death, Other)
  Sender: FDA-Public Use
  Company Number: JP-PFIZER INC-2018036709

PATIENT
  Age: 65 Year
  Sex: Male
  Weight: 78 kg

DRUGS (8)
  1. FAMOTIDINE. [Suspect]
     Active Substance: FAMOTIDINE
     Indication: PROPHYLAXIS AGAINST GASTROINTESTINAL ULCER
     Dosage: 20 MG, DAILY
     Route: 042
     Dates: start: 20180119, end: 20180122
  2. ELIQUIS [Concomitant]
     Active Substance: APIXABAN
     Dosage: UNK
     Route: 048
  3. LASIX [Concomitant]
     Active Substance: FUROSEMIDE
     Indication: CARDIAC FAILURE CONGESTIVE
     Dosage: 20 MG, DAILY
     Route: 042
     Dates: start: 20180119, end: 20180120
  4. PRECEDEX [Suspect]
     Active Substance: DEXMEDETOMIDINE HYDROCHLORIDE
     Dosage: 0.5 UG/KG/H
     Route: 042
     Dates: start: 20180121
  5. PRECEDEX [Suspect]
     Active Substance: DEXMEDETOMIDINE HYDROCHLORIDE
     Dosage: 0.4 UG/KG/H
     Route: 042
     Dates: start: 20180122, end: 20180122
  6. PRECEDEX [Suspect]
     Active Substance: DEXMEDETOMIDINE HYDROCHLORIDE
     Indication: RESTLESSNESS
     Dosage: 0.3 UG/KG/H
     Route: 042
     Dates: start: 20180119
  7. RAPIACTA [Suspect]
     Active Substance: PERAMIVIR
     Indication: INFLUENZA
     Dosage: 300 MG, DAILY
     Route: 042
     Dates: start: 20180119, end: 20180120
  8. ONOACT [Suspect]
     Active Substance: LANDIOLOL HYDROCHLORIDE
     Indication: TACHYCARDIA
     Dosage: 280 MG, DAILY
     Route: 042
     Dates: start: 20180119, end: 20180122

REACTIONS (4)
  - Depressed level of consciousness [Fatal]
  - Hepatic function abnormal [Fatal]
  - Disseminated intravascular coagulation [Fatal]
  - Multiple organ dysfunction syndrome [Fatal]

NARRATIVE: CASE EVENT DATE: 20180119
